FAERS Safety Report 17474482 (Version 1)
Quarter: 2020Q1

REPORT INFORMATION
  Report Type: Spontaneous
  Country: US (occurrence: US)
  Receive Date: 20200228
  Receipt Date: 20200228
  Transmission Date: 20200409
  Serious: No
  Sender: FDA-Public Use
  Company Number: US-ABBVIE-19S-163-2680623-00

PATIENT
  Age: 65 Year
  Sex: Male
  Weight: 70.31 kg

DRUGS (3)
  1. ANDROGEL [Suspect]
     Active Substance: TESTOSTERONE
     Indication: PRODUCT USED FOR UNKNOWN INDICATION
     Route: 062
     Dates: start: 2014, end: 20151107
  2. HOSPIRA TESTOSTERONE [Suspect]
     Active Substance: TESTOSTERONE
     Indication: SECONDARY HYPOGONADISM
     Dosage: 1ML; 0.5ML EVERY 14 DAYS
     Route: 050
     Dates: start: 20180411
  3. HOSPIRA TESTOSTERONE [Suspect]
     Active Substance: TESTOSTERONE
     Route: 050
     Dates: start: 20180425

REACTIONS (10)
  - Injection site swelling [Recovered/Resolved]
  - Visual impairment [Unknown]
  - Therapeutic product effect decreased [Unknown]
  - Injection site haemorrhage [Recovered/Resolved]
  - Injection site pain [Recovered/Resolved]
  - Wrong technique in product usage process [Unknown]
  - Product physical consistency issue [Unknown]
  - Tendon rupture [Unknown]
  - Injection site bruising [Not Recovered/Not Resolved]
  - Injection site reaction [Unknown]

NARRATIVE: CASE EVENT DATE: 201804
